FAERS Safety Report 22073186 (Version 1)
Quarter: 2023Q1

REPORT INFORMATION
  Report Type: Spontaneous
  Country: None (occurrence: US)
  Receive Date: 20230308
  Receipt Date: 20230308
  Transmission Date: 20230418
  Serious: No
  Sender: FDA-Public Use
  Company Number: US-Oxford Pharmaceuticals, LLC-2138828

PATIENT
  Age: 80 Year
  Sex: Female
  Weight: 92.99 kg

DRUGS (1)
  1. METHOCARBAMOL [Suspect]
     Active Substance: METHOCARBAMOL
     Indication: Myalgia
     Route: 048
     Dates: start: 20220506

REACTIONS (1)
  - Drug ineffective [Unknown]
